FAERS Safety Report 26027445 (Version 1)
Quarter: 2025Q4

REPORT INFORMATION
  Report Type: Spontaneous
  Country: US (occurrence: US)
  Receive Date: 20251111
  Receipt Date: 20251111
  Transmission Date: 20260118
  Serious: Yes (Other)
  Sender: AMGEN
  Company Number: US-AMGEN-USASP2025219331

PATIENT
  Age: 76 Year
  Sex: Female

DRUGS (9)
  1. BEVACIZUMAB [Suspect]
     Active Substance: BEVACIZUMAB
     Indication: Ovarian cancer
     Dosage: UNK
     Route: 065
  2. TRASTUZUMAB [Suspect]
     Active Substance: TRASTUZUMAB
     Indication: Ovarian cancer
     Dosage: UNK
     Route: 065
  3. PACLITAXEL [Concomitant]
     Active Substance: PACLITAXEL
  4. CARBOPLATIN [Concomitant]
     Active Substance: CARBOPLATIN
  5. GEMCITABINE [Concomitant]
     Active Substance: GEMCITABINE
  6. LETROZOLE [Concomitant]
     Active Substance: LETROZOLE
  7. CYCLOPHOSPHAMIDE [Concomitant]
     Active Substance: CYCLOPHOSPHAMIDE
     Route: 048
  8. TRASTUZUMAB DERUXTECAN [Concomitant]
     Active Substance: TRASTUZUMAB DERUXTECAN
  9. TRASTUZUMAB DERUXTECAN [Concomitant]
     Active Substance: TRASTUZUMAB DERUXTECAN

REACTIONS (2)
  - Ovarian cancer [Unknown]
  - Neutropenia [Unknown]
